FAERS Safety Report 7691084-6 (Version None)
Quarter: 2011Q3

REPORT INFORMATION
  Report Type: 
  Country: None (occurrence: None)
  Receive Date: 20110818
  Receipt Date: 20110808
  Transmission Date: 20111222
  Serious: Yes (Life-Threatening, Other)
  Sender: FDA-Public Use
  Company Number: US-ROCHE-796047

PATIENT

DRUGS (3)
  1. FLOXURIDINE [Suspect]
     Dosage: 0.16 MG.KG X 30/PUMP FLOW RATE. INFUSION.
     Route: 065
  2. DEXAMETHASONE [Suspect]
     Dosage: INFUSION
     Route: 042
  3. BEVACIZUMAB [Suspect]
     Dosage: EVERY OTHER WEEK STARTING 6 WEEKS AFTER SURGERY.
     Route: 065

REACTIONS (11)
  - HYPONATRAEMIA [None]
  - BILE DUCT STENOSIS [None]
  - THROMBOSIS [None]
  - CONFUSIONAL STATE [None]
  - BLOOD ALKALINE PHOSPHATASE INCREASED [None]
  - DUODENAL PERFORATION [None]
  - SYNCOPE [None]
  - MYOCARDIAL INFARCTION [None]
  - BLOOD BILIRUBIN INCREASED [None]
  - HYPERGLYCAEMIA [None]
  - ASPARTATE AMINOTRANSFERASE INCREASED [None]
